FAERS Safety Report 8968676 (Version 1)
Quarter: 2012Q4

REPORT INFORMATION
  Report Type: 
  Country: AR (occurrence: AR)
  Receive Date: 20121217
  Receipt Date: 20121217
  Transmission Date: 20130627
  Serious: Yes (Other)
  Sender: FDA-Public Use
  Company Number: AR-PURDUE-USA-2012-0096829

PATIENT
  Sex: Female

DRUGS (4)
  1. UNSPECIFIED INGREDIENT [Suspect]
     Indication: PAIN
     Dosage: 10 mg, weekly
     Route: 062
     Dates: start: 201207, end: 201211
  2. ADALIMUMAB [Concomitant]
     Dosage: 40 mg, see text
     Route: 058
  3. METHYLPREDNISONE [Concomitant]
     Dosage: 8 mg, daily
     Route: 048
  4. LEFLUNOMIDE [Concomitant]
     Dosage: 20 mg, daily

REACTIONS (1)
  - Application site burn [Not Recovered/Not Resolved]
